FAERS Safety Report 9905351 (Version 1)
Quarter: 2014Q1

REPORT INFORMATION
  Report Type: Spontaneous
  Country: US (occurrence: None)
  Receive Date: 20140218
  Receipt Date: 20140218
  Transmission Date: 20141002
  Serious: Yes (Life-Threatening)
  Sender: FDA-Public Use
  Company Number: None

PATIENT
  Age: 23 Month
  Sex: Female
  Weight: 11.8 kg

DRUGS (1)
  1. CITRULLINE [Suspect]
     Indication: ORNITHINE TRANSCARBAMOYLASE DEFICIENCY
     Route: 048
     Dates: start: 20121119, end: 20140212

REACTIONS (1)
  - Drug ineffective [None]
